FAERS Safety Report 5729488-0 (Version None)
Quarter: 2008Q2

REPORT INFORMATION
  Report Type: 
  Country: None (occurrence: None)
  Receive Date: 20080506
  Receipt Date: 20080428
  Transmission Date: 20081010
  Serious: Yes (Hospitalization, Other)
  Sender: FDA-Public Use
  Company Number: TR-ELI_LILLY_AND_COMPANY-TR200804007000

PATIENT
  Age: 45 Year
  Sex: Male

DRUGS (2)
  1. HUMULIN 70/30 [Suspect]
     Indication: TYPE 2 DIABETES MELLITUS
     Dosage: 10 UL, EACH MORNING
     Route: 058
  2. HUMULIN 70/30 [Suspect]
     Dosage: 22 IU, EACH EVENING
     Route: 058

REACTIONS (1)
  - PARALYSIS [None]
